FAERS Safety Report 5707658-5 (Version None)
Quarter: 2008Q2

REPORT INFORMATION
  Report Type: 
  Country: None (occurrence: None)
  Receive Date: 20080416
  Receipt Date: 20080404
  Transmission Date: 20081010
  Serious: Yes (Other)
  Sender: FDA-Public Use
  Company Number: US-PFIZER INC-2008030187

PATIENT
  Sex: Female
  Weight: 83.9 kg

DRUGS (6)
  1. LYRICA [Suspect]
     Indication: PAIN
  2. TOPROL-XL [Concomitant]
  3. TRIAMTERENE AND HYDROCHLOROTHIAZIDE [Concomitant]
  4. ACCUPRIL [Concomitant]
  5. K-DUR [Concomitant]
  6. WARFARIN SODIUM [Concomitant]

REACTIONS (4)
  - ANURIA [None]
  - FEAR [None]
  - MYDRIASIS [None]
  - VISUAL BRIGHTNESS [None]
